FAERS Safety Report 13631828 (Version 1)
Quarter: 2017Q2

REPORT INFORMATION
  Report Type: Spontaneous
  Country: US (occurrence: US)
  Receive Date: 20170608
  Receipt Date: 20170608
  Transmission Date: 20170830
  Serious: Yes (Other)
  Sender: FDA-Public Use
  Company Number: US-ALLERGAN-1723309US

PATIENT
  Age: 86 Year
  Sex: Female
  Weight: 89.34 kg

DRUGS (7)
  1. NAMENDA XR [Suspect]
     Active Substance: MEMANTINE HYDROCHLORIDE
     Indication: PRODUCT USED FOR UNKNOWN INDICATION
     Dosage: 28 MG, QD
     Route: 048
  2. CELEXA [Suspect]
     Active Substance: CITALOPRAM HYDROBROMIDE
     Indication: PRODUCT USED FOR UNKNOWN INDICATION
     Dosage: 20 MG, QD
     Route: 048
  3. NUEDEXTA [Concomitant]
     Active Substance: DEXTROMETHORPHAN HYDROBROMIDE\QUINIDINE SULFATE
     Indication: PRODUCT USED FOR UNKNOWN INDICATION
     Dosage: UNK UNK, BID
     Route: 065
  4. COZAAR [Concomitant]
     Active Substance: LOSARTAN POTASSIUM
     Indication: PRODUCT USED FOR UNKNOWN INDICATION
     Dosage: 25 MG, QD
     Route: 048
  5. INSULIN [Concomitant]
     Active Substance: INSULIN NOS
     Indication: DIABETES MELLITUS
     Dosage: 20 UNITS, QD (INCREASED UNITS PER FASTING SUGER)
     Route: 065
  6. REMERON [Concomitant]
     Active Substance: MIRTAZAPINE
     Indication: PRODUCT USED FOR UNKNOWN INDICATION
     Dosage: 15 MG, QHS
     Route: 048
  7. EXELON [Concomitant]
     Active Substance: RIVASTIGMINE TARTRATE
     Indication: PRODUCT USED FOR UNKNOWN INDICATION
     Dosage: 1 DF, QD
     Route: 062

REACTIONS (27)
  - Seizure [Unknown]
  - Type 2 diabetes mellitus [Unknown]
  - Vitamin D deficiency [Unknown]
  - Failure to thrive [Unknown]
  - Hyperlipidaemia [Unknown]
  - Breast disorder female [Unknown]
  - Depression [Unknown]
  - Colon cancer [Unknown]
  - Chronic kidney disease [Unknown]
  - Vitamin B12 deficiency [Unknown]
  - Gastrooesophageal reflux disease [Unknown]
  - Urinary incontinence [Unknown]
  - Diverticulitis [Unknown]
  - Hypoxia [Unknown]
  - Dementia [Unknown]
  - Emphysema [Unknown]
  - Clostridium difficile colitis [Unknown]
  - Cardiac failure congestive [Unknown]
  - Chondropathy [Unknown]
  - Essential hypertension [Unknown]
  - Colitis [Unknown]
  - Anaemia [Unknown]
  - Somnolence [Unknown]
  - Bone disorder [Unknown]
  - Chronic respiratory failure [Unknown]
  - Gait disturbance [Unknown]
  - Asthenia [Unknown]
